FAERS Safety Report 8880584 (Version 3)
Quarter: 2013Q1

REPORT INFORMATION
  Report Type: Spontaneous
  Country: US (occurrence: US)
  Receive Date: 20121101
  Receipt Date: 20130131
  Transmission Date: 20140127
  Serious: Yes (Hospitalization)
  Sender: FDA-Public Use
  Company Number: US-BAYER-2012-114233

PATIENT
  Age: 41 Year
  Sex: Female

DRUGS (10)
  1. YASMIN [Suspect]
     Indication: CONTRACEPTION
     Dosage: UNK
     Dates: start: 20031216, end: 20051106
  2. SYNTHROID [Concomitant]
     Indication: THYROID DISORDER
     Dosage: 120-150 ?G, UNK
     Route: 048
     Dates: start: 20050916
  3. SYNTHROID [Concomitant]
     Indication: THYROID DISORDER
     Dosage: UNK
     Route: 048
     Dates: start: 20030523, end: 20051013
  4. CLONIDINE [Concomitant]
     Indication: HYPERTENSION
     Dosage: 0.1 MG, UNK
     Route: 048
     Dates: start: 20051013
  5. GALENIC /HYDROCHLOROTHIAZIDE/VALSARTAN/ [Concomitant]
     Indication: HYPERTENSION
     Dosage: 160 MG, UNK
     Route: 048
     Dates: start: 20051106
  6. AVELOX [Concomitant]
     Dosage: UNK
     Dates: start: 20031216, end: 20051106
  7. LEVAQUIN [Concomitant]
  8. CATAPRES [Concomitant]
  9. FOLIC ACID [Concomitant]
  10. HEMOCYTE [Concomitant]

REACTIONS (4)
  - Pulmonary embolism [None]
  - Injury [None]
  - Pain [None]
  - Pain [None]
